FAERS Safety Report 15881841 (Version 6)
Quarter: 2019Q4

REPORT INFORMATION
  Report Type: Spontaneous
  Country: US (occurrence: US)
  Receive Date: 20190128
  Receipt Date: 20191030
  Transmission Date: 20200122
  Serious: No
  Sender: FDA-Public Use
  Company Number: US-SA-2019SA021545

PATIENT
  Age: 66 Year
  Sex: Female

DRUGS (2)
  1. DUPIXENT [Suspect]
     Active Substance: DUPILUMAB
     Dosage: UNK, UNK
     Route: 058
     Dates: start: 20181030
  2. DUPIXENT [Suspect]
     Active Substance: DUPILUMAB
     Dosage: 300 MG, QOW
     Route: 058
     Dates: start: 201811

REACTIONS (11)
  - Eye pruritus [Unknown]
  - Therapeutic response decreased [Unknown]
  - Rash [Unknown]
  - Eye irritation [Unknown]
  - Eczema [Unknown]
  - Pruritus [Unknown]
  - Miliaria [Unknown]
  - Nasopharyngitis [Unknown]
  - Feeling cold [Unknown]
  - Dry eye [Not Recovered/Not Resolved]
  - Incorrect dose administered [Unknown]

NARRATIVE: CASE EVENT DATE: 20181201
